FAERS Safety Report 4549112-2 (Version None)
Quarter: 2005Q1

REPORT INFORMATION
  Report Type: 
  Country: None (occurrence: None)
  Receive Date: 20050110
  Receipt Date: 20050104
  Transmission Date: 20050727
  Serious: Yes (Other)
  Sender: FDA-Public Use
  Company Number: PHEH2005US00508

PATIENT

DRUGS (1)
  1. RITALIN [Suspect]

REACTIONS (1)
  - NEUROLOGICAL SYMPTOM [None]
